FAERS Safety Report 25708175 (Version 1)
Quarter: 2025Q3

REPORT INFORMATION
  Report Type: Report from Study
  Country: CA (occurrence: CA)
  Receive Date: 20250820
  Receipt Date: 20250820
  Transmission Date: 20251021
  Serious: Yes (Other)
  Sender: ABBVIE
  Company Number: CA-ABBVIE-6418337

PATIENT
  Sex: Female

DRUGS (1)
  1. RINVOQ [Suspect]
     Active Substance: UPADACITINIB
     Indication: Crohn^s disease
     Dosage: LDD: 13 AUG 2025
     Route: 048

REACTIONS (6)
  - Ileostomy [Unknown]
  - Abdominal mass [Unknown]
  - Abdominal pain [Unknown]
  - Impaired work ability [Unknown]
  - Social problem [Unknown]
  - Hernia [Unknown]
